FAERS Safety Report 9751998 (Version 2)
Quarter: 2013Q4

REPORT INFORMATION
  Report Type: Report from Study
  Country: CO (occurrence: CO)
  Receive Date: 20131213
  Receipt Date: 20131218
  Transmission Date: 20140711
  Serious: Yes (Other)
  Sender: FDA-Public Use
  Company Number: CO-ROCHE-1318044

PATIENT
  Sex: Male
  Weight: 80 kg

DRUGS (2)
  1. LUCENTIS [Suspect]
     Indication: MACULAR DEGENERATION
     Route: 050
     Dates: start: 2011
  2. LUCENTIS [Suspect]
     Dosage: LEFT EYE
     Route: 050
     Dates: start: 20130318

REACTIONS (1)
  - Retinal vascular thrombosis [Recovered/Resolved]
